FAERS Safety Report 7944507-9 (Version None)
Quarter: 2011Q4

REPORT INFORMATION
  Report Type: 
  Country: None (occurrence: None)
  Receive Date: 20111122
  Receipt Date: 20110728
  Transmission Date: 20120403
  Serious: Yes (Other)
  Sender: FDA-Public Use
  Company Number: PHHY2011US68785

PATIENT
  Age: 58 Year
  Sex: Female

DRUGS (2)
  1. GILENYA [Suspect]
     Indication: MULTIPLE SCLEROSIS
     Dosage: 0.5MG/DAILY, ORAL
     Route: 048
     Dates: start: 20110727, end: 20110728
  2. TOPROL-XL [Concomitant]

REACTIONS (2)
  - DIZZINESS [None]
  - HEART RATE DECREASED [None]
